FAERS Safety Report 20547305 (Version 6)
Quarter: 2022Q2

REPORT INFORMATION
  Report Type: Spontaneous
  Country: US (occurrence: US)
  Receive Date: 20220303
  Receipt Date: 20220608
  Transmission Date: 20220720
  Serious: No
  Sender: FDA-Public Use
  Company Number: US-PFIZER INC-202200224251

PATIENT
  Age: 52 Year
  Sex: Female

DRUGS (2)
  1. IBRANCE [Suspect]
     Active Substance: PALBOCICLIB
     Dosage: 125 MG
     Dates: start: 20210118
  2. IBRANCE [Suspect]
     Active Substance: PALBOCICLIB
     Dosage: 125 MG
     Dates: start: 20220119

REACTIONS (7)
  - Malaise [Unknown]
  - Oesophagitis [Not Recovered/Not Resolved]
  - Full blood count decreased [Unknown]
  - Nasopharyngitis [Recovered/Resolved]
  - Ear discomfort [Unknown]
  - Drug hypersensitivity [Unknown]
  - Tinnitus [Unknown]

NARRATIVE: CASE EVENT DATE: 20220101
